FAERS Safety Report 17142852 (Version 1)
Quarter: 2019Q4

REPORT INFORMATION
  Report Type: Spontaneous
  Country: US (occurrence: US)
  Receive Date: 20191211
  Receipt Date: 20191211
  Transmission Date: 20200122
  Serious: Yes (Hospitalization)
  Sender: FDA-Public Use
  Company Number: None

PATIENT
  Age: 58 Year
  Sex: Female

DRUGS (6)
  1. ENBREL [Suspect]
     Active Substance: ETANERCEPT
     Indication: RHEUMATOID ARTHRITIS
     Route: 058
     Dates: start: 20190417
  2. MVI [Suspect]
     Active Substance: VITAMINS
  3. AMLODIPINE [Suspect]
     Active Substance: AMLODIPINE BESYLATE
  4. BENZTROPINE. [Suspect]
     Active Substance: BENZTROPINE
  5. SULFASALZINE [Suspect]
     Active Substance: SULFASALAZINE
  6. PREDNISONE. [Suspect]
     Active Substance: PREDNISONE

REACTIONS (1)
  - Rheumatoid arthritis [None]

NARRATIVE: CASE EVENT DATE: 20191207
